FAERS Safety Report 5228772-7 (Version None)
Quarter: 2007Q1

REPORT INFORMATION
  Report Type: 
  Country: None (occurrence: None)
  Receive Date: 20070131
  Receipt Date: 20070124
  Transmission Date: 20070707
  Serious: Yes (Disabling, Other)
  Sender: FDA-Public Use
  Company Number: GB-1160232

PATIENT
  Sex: Male

DRUGS (3)
  1. MAXIDEX OPHTHALMIC(DEXAMETHASONE) SUSPENSION [Suspect]
     Dosage: 1 MINIM TWICE A DAY INTO THE LEFT EYE OPHTHALMIC
     Route: 047
  2. CYCLOSPORIN (CLCLOSPORIN) [Concomitant]
  3. TIMOLOL MALEATE [Suspect]
     Dosage: 1 MINIM TWICE A DAY INTO THE LEFT EYE
     Route: 047

REACTIONS (2)
  - CORNEAL DEPOSITS [None]
  - VISUAL ACUITY REDUCED [None]
